FAERS Safety Report 10026813 (Version 1)
Quarter: 2014Q1

REPORT INFORMATION
  Report Type: Spontaneous
  Country: US (occurrence: US)
  Receive Date: 20140321
  Receipt Date: 20140321
  Transmission Date: 20141002
  Serious: No
  Sender: FDA-Public Use
  Company Number: US-SHIRE-US201400400

PATIENT
  Sex: 0

DRUGS (2)
  1. LIALDA [Suspect]
     Indication: COLITIS ULCERATIVE
     Dosage: UNK, UNKNOWN
     Route: 048
     Dates: end: 20131203
  2. HUMIRA [Suspect]
     Indication: COLITIS ULCERATIVE
     Dosage: 40 MG, 1X/2WKS
     Route: 058
     Dates: start: 20131203

REACTIONS (2)
  - Haematochezia [Unknown]
  - Diarrhoea [Unknown]
